FAERS Safety Report 9177865 (Version 1)
Quarter: 2013Q1

REPORT INFORMATION
  Report Type: Spontaneous
  Country: US (occurrence: US)
  Receive Date: 20130321
  Receipt Date: 20130321
  Transmission Date: 20140127
  Serious: No
  Sender: FDA-Public Use
  Company Number: US-BAYER-2013-035602

PATIENT
  Sex: Female

DRUGS (1)
  1. ALEVE TABLET [Suspect]
     Dosage: 1 DF, OTHER FREQUENCY
     Route: 048

REACTIONS (2)
  - Diarrhoea [Unknown]
  - Overdose [None]
